FAERS Safety Report 10208541 (Version 1)
Quarter: 2014Q2

REPORT INFORMATION
  Report Type: Spontaneous
  Country: TR (occurrence: TR)
  Receive Date: 20140530
  Receipt Date: 20140530
  Transmission Date: 20141212
  Serious: Yes (Death, Hospitalization, Other)
  Sender: FDA-Public Use
  Company Number: TR-WATSON-2014-11192

PATIENT
  Age: 17 Year
  Sex: Female

DRUGS (3)
  1. METFORMIN (UNKNOWN) [Suspect]
     Indication: SUICIDE ATTEMPT
     Dosage: 75000 MG, SINGLE (75 PILLS OF 1000 MG)
     Route: 065
  2. RUPATADINE [Suspect]
     Indication: SUICIDE ATTEMPT
     Dosage: 200 MG, SINGLE (20 PILLS OF 100 MG)
     Route: 065
  3. AMITRIPTYLINE [Concomitant]
     Indication: MAJOR DEPRESSION
     Dosage: 10 MG, DAILY
     Route: 065

REACTIONS (5)
  - Ventricular tachycardia [Fatal]
  - Completed suicide [Fatal]
  - Intentional overdose [Fatal]
  - Lactic acidosis [None]
  - Lethargy [Unknown]
